FAERS Safety Report 6384069-3 (Version None)
Quarter: 2009Q3

REPORT INFORMATION
  Report Type: 
  Country: None (occurrence: None)
  Receive Date: 20090928
  Receipt Date: 20090915
  Transmission Date: 20100115
  Serious: Yes (Hospitalization)
  Sender: FDA-Public Use
  Company Number: 230082J09BRA

PATIENT
  Age: 66 Year
  Sex: Female

DRUGS (3)
  1. REBIF [Suspect]
     Indication: RELAPSING-REMITTING MULTIPLE SCLEROSIS
     Dosage: 44 MCG, 3 IN 1 WEEKS
     Dates: start: 20020101
  2. SERTRALINE HYDROCHLORIDE [Concomitant]
  3. TYLENOL (PARACETAMOL) (PARACETAMOL) [Concomitant]

REACTIONS (2)
  - INCOHERENT [None]
  - MUSCULOSKELETAL STIFFNESS [None]
